FAERS Safety Report 18160410 (Version 3)
Quarter: 2020Q4

REPORT INFORMATION
  Report Type: Spontaneous
  Country: FR (occurrence: FR)
  Receive Date: 20200817
  Receipt Date: 20201216
  Transmission Date: 20210113
  Serious: Yes (Other)
  Sender: FDA-Public Use
  Company Number: FR-009507513-2008FRA008997

PATIENT
  Age: 26 Year
  Sex: Female
  Weight: 55 kg

DRUGS (1)
  1. NEXPLANON [Suspect]
     Active Substance: ETONOGESTREL
     Dosage: 1 IMPLANT, LEFT ARM
     Route: 058
     Dates: start: 20190807, end: 20201019

REACTIONS (10)
  - Menstruation delayed [Unknown]
  - Complication of device removal [Recovered/Resolved]
  - Inappropriate schedule of product administration [Unknown]
  - Device deployment issue [Recovered/Resolved]
  - Unintended pregnancy [Not Recovered/Not Resolved]
  - Vulvovaginal pruritus [Unknown]
  - Vaginal discharge [Unknown]
  - Tuberculosis [Unknown]
  - Device issue [Recovered/Resolved]
  - Pregnancy with implant contraceptive [Not Recovered/Not Resolved]

NARRATIVE: CASE EVENT DATE: 20190807
